FAERS Safety Report 5064921-1 (Version None)
Quarter: 2006Q3

REPORT INFORMATION
  Report Type: 
  Country: None (occurrence: None)
  Receive Date: 20060727
  Receipt Date: 20060727
  Transmission Date: 20061208
  Serious: Yes (Hospitalization)
  Sender: FDA-Public Use
  Company Number: None

PATIENT
  Age: 59 Year
  Sex: Female

DRUGS (8)
  1. OXYCODONE AND ACETAMINOPHEN [Suspect]
     Indication: PAIN
     Dosage: ONE PO OTO
     Dates: start: 20060322
  2. PHENERGAN HCL [Suspect]
     Indication: NAUSEA
     Dosage: 12.5 MG PO OTO
     Route: 048
     Dates: start: 20060322
  3. INSULIN [Concomitant]
  4. SYNTHROID [Concomitant]
  5. PEPCID [Concomitant]
  6. EFFEXOR [Concomitant]
  7. ACTOS [Concomitant]
  8. AMOXICILLIN [Concomitant]

REACTIONS (4)
  - LABORATORY TEST ABNORMAL [None]
  - LOSS OF CONSCIOUSNESS [None]
  - OXYGEN SATURATION DECREASED [None]
  - RESPIRATORY ARREST [None]
